FAERS Safety Report 20744777 (Version 2)
Quarter: 2022Q2

REPORT INFORMATION
  Report Type: Spontaneous
  Country: GR (occurrence: GR)
  Receive Date: 20220425
  Receipt Date: 20220527
  Transmission Date: 20220721
  Serious: No
  Sender: FDA-Public Use
  Company Number: GR-PFIZER INC-202200488184

PATIENT
  Age: 8 Year
  Sex: Female
  Weight: 21 kg

DRUGS (1)
  1. GENOTROPIN [Suspect]
     Active Substance: SOMATROPIN
     Indication: Growth hormone deficiency
     Dosage: 4.6 MG/7 DAYS/12MG PEN
     Route: 058
     Dates: start: 202105

REACTIONS (2)
  - Device issue [Unknown]
  - Wrong technique in device usage process [Unknown]
